FAERS Safety Report 7499651-X (Version None)
Quarter: 2011Q2

REPORT INFORMATION
  Report Type: 
  Country: None (occurrence: None)
  Receive Date: 20110524
  Receipt Date: 20110517
  Transmission Date: 20111010
  Serious: Yes (Hospitalization)
  Sender: FDA-Public Use
  Company Number: DE-ROCHE-621331

PATIENT
  Sex: Female
  Weight: 90 kg

DRUGS (6)
  1. BEVACIZUMAB [Suspect]
     Indication: BREAST CANCER
     Dosage: FORM AS PER PROTOCOL. FREQUENCY REPORTED AS D1 Q 21 DAYS.
     Route: 042
     Dates: start: 20090226
  2. ENALAPRIL MALEATE [Concomitant]
     Dosage: DOSE REPORTED AS : 1 XTGL.
  3. KEVATRIL [Concomitant]
     Dosage: STOP DATE REPORTED AS 29 FEBRUARY 2009.
     Dates: start: 20090226
  4. DEXAMETHASONE [Concomitant]
     Dosage: STOP DATE REPORTED AS 29 FEBRUARY 2009.
     Dates: start: 20090225
  5. CYCLOPHOSPHAMIDE [Suspect]
     Indication: BREAST CANCER
     Dosage: FREQUENCY: D1Q 21 DAYS
     Route: 042
     Dates: start: 20090226
  6. EPIRUBICIN [Suspect]
     Indication: BREAST CANCER
     Dosage: FREQUENCY: D1Q21DAYS
     Route: 042
     Dates: start: 20090226

REACTIONS (3)
  - FEBRILE NEUTROPENIA [None]
  - DIVERTICULITIS [None]
  - GASTROINTESTINAL DISORDER [None]
